FAERS Safety Report 19425384 (Version 1)
Quarter: 2021Q2

REPORT INFORMATION
  Report Type: Spontaneous
  Country: US (occurrence: US)
  Receive Date: 20210617
  Receipt Date: 20210617
  Transmission Date: 20210717
  Serious: No
  Sender: FDA-Public Use
  Company Number: US-BEIGENE USA INC-BGN-2021-002043

PATIENT

DRUGS (2)
  1. ELIQUIS [Suspect]
     Active Substance: APIXABAN
     Dosage: 2.5 MILLIGRAM, BID
     Route: 048
  2. BRUKINSA [Suspect]
     Active Substance: ZANUBRUTINIB
     Indication: PRODUCT USED FOR UNKNOWN INDICATION
     Dosage: UNK

REACTIONS (4)
  - Contusion [Recovering/Resolving]
  - Paraesthesia [Recovering/Resolving]
  - Skin discolouration [Unknown]
  - Limb discomfort [Recovering/Resolving]
